FAERS Safety Report 7574389-9 (Version None)
Quarter: 2011Q2

REPORT INFORMATION
  Report Type: 
  Country: None (occurrence: None)
  Receive Date: 20110627
  Receipt Date: 20110204
  Transmission Date: 20111010
  Serious: Yes (Hospitalization)
  Sender: FDA-Public Use
  Company Number: US-BAYER-201011607NA

PATIENT
  Age: 37 Year
  Sex: Female
  Weight: 68 kg

DRUGS (9)
  1. YASMIN [Suspect]
     Indication: ORAL CONTRACEPTION
     Dosage: 1 DF (DAILY DOSE), QD, ORAL
     Route: 048
     Dates: end: 20080701
  2. NAPROXEN (ALEVE) [Concomitant]
     Dosage: UNK
     Dates: start: 20010101, end: 20100101
  3. TYLENOL-500 [Concomitant]
     Dosage: UNK
     Dates: start: 20010101, end: 20100101
  4. YASMIN [Suspect]
     Indication: ACNE
  5. DROSPIRENONE AND ETHINYL ESTRADIOL [Suspect]
     Indication: ACNE
  6. NSAID'S [Concomitant]
  7. ADVIL LIQUI-GELS [Concomitant]
     Dosage: UNK
     Dates: start: 20010101, end: 20100101
  8. PREVACID [Concomitant]
     Indication: GASTROOESOPHAGEAL REFLUX DISEASE
     Dosage: UNK
     Dates: start: 20070101, end: 20080101
  9. DROSPIRENONE AND ETHINYL ESTRADIOL [Suspect]
     Indication: ORAL CONTRACEPTION
     Dosage: 1 DF (DAILY DOSE), , ORAL
     Route: 048
     Dates: end: 20080701

REACTIONS (7)
  - ATELECTASIS [None]
  - DYSPNOEA [None]
  - IRON DEFICIENCY ANAEMIA [None]
  - PULMONARY EMBOLISM [None]
  - PLEURAL EFFUSION [None]
  - CHEST PAIN [None]
  - PAIN [None]
